FAERS Safety Report 8443945-8 (Version None)
Quarter: 2012Q2

REPORT INFORMATION
  Report Type: 
  Country: None (occurrence: None)
  Receive Date: 20120618
  Receipt Date: 20120607
  Transmission Date: 20120825
  Serious: Yes (Hospitalization)
  Sender: FDA-Public Use
  Company Number: PHEH2012US011585

PATIENT
  Age: 57 Year
  Sex: Male

DRUGS (5)
  1. LATUDA [Suspect]
     Indication: BIPOLAR II DISORDER
     Dosage: 40 MG, QD
     Route: 048
     Dates: start: 20111201
  2. GILENYA [Suspect]
     Indication: MULTIPLE SCLEROSIS
     Dosage: UNK UKN, UNK
     Route: 048
  3. REBIF [Suspect]
     Dosage: UNK UKN, UNK
  4. LIPITOR [Concomitant]
     Dosage: UNK UKN, UNK
  5. CITALOPRAM [Concomitant]
     Dosage: UNK UKN, UNK

REACTIONS (7)
  - BLOOD ALBUMIN DECREASED [None]
  - GLOMERULONEPHRITIS MINIMAL LESION [None]
  - PROTEINURIA [None]
  - BLOOD CALCIUM DECREASED [None]
  - PROTEIN TOTAL DECREASED [None]
  - PROTEIN TOTAL INCREASED [None]
  - GLOBULINS DECREASED [None]
